FAERS Safety Report 8931186 (Version 2)
Quarter: 2012Q4

REPORT INFORMATION
  Report Type: Report from Study
  Country: CA (occurrence: CA)
  Receive Date: 20121128
  Receipt Date: 20121207
  Transmission Date: 20130627
  Serious: Yes (Hospitalization, Other)
  Sender: FDA-Public Use
  Company Number: CA-ABBOTT-12P-028-1012156-00

PATIENT
  Age: 63 None
  Sex: Female
  Weight: 56.75 kg

DRUGS (2)
  1. HUMIRA [Suspect]
     Indication: CROHN^S DISEASE
     Dates: start: 20090218, end: 20110909
  2. HUMIRA [Suspect]
     Dates: start: 20121130

REACTIONS (11)
  - Fistula [Recovered/Resolved]
  - Gastrointestinal infection [Unknown]
  - Crohn^s disease [Unknown]
  - Abdominal infection [Unknown]
  - Postoperative wound infection [Unknown]
  - Purulent discharge [Not Recovered/Not Resolved]
  - Scar [Not Recovered/Not Resolved]
  - Procedural pain [Not Recovered/Not Resolved]
  - Blood pressure abnormal [Unknown]
  - Lymphadenopathy [Not Recovered/Not Resolved]
  - Skin disorder [Unknown]
